FAERS Safety Report 20235835 (Version 1)
Quarter: 2021Q4

REPORT INFORMATION
  Report Type: Report from Study
  Country: BE (occurrence: BE)
  Receive Date: 20211228
  Receipt Date: 20211228
  Transmission Date: 20220303
  Serious: Yes (Other)
  Sender: FDA-Public Use
  Company Number: BE-CELGENE-BEL-20210607383

PATIENT
  Age: 62 Year
  Sex: Female

DRUGS (10)
  1. DEXAMETHASONE [Suspect]
     Active Substance: DEXAMETHASONE
     Indication: Plasma cell myeloma
     Route: 048
     Dates: start: 20181015, end: 20181104
  2. DEXAMETHASONE [Suspect]
     Active Substance: DEXAMETHASONE
     Route: 048
     Dates: start: 20190204
  3. DEXAMETHASONE [Suspect]
     Active Substance: DEXAMETHASONE
     Route: 048
     Dates: start: 20181210, end: 20181230
  4. DEXAMETHASONE [Suspect]
     Active Substance: DEXAMETHASONE
     Route: 048
     Dates: start: 20190107, end: 20190127
  5. DEXAMETHASONE [Suspect]
     Active Substance: DEXAMETHASONE
     Route: 048
     Dates: start: 20181112, end: 20181202
  6. REVLIMID [Suspect]
     Active Substance: LENALIDOMIDE
     Indication: Plasma cell myeloma
     Dosage: LAST ADMINISTRATION WAS ON 04/NOV/2018
     Route: 048
     Dates: start: 20181015
  7. REVLIMID [Suspect]
     Active Substance: LENALIDOMIDE
     Dosage: LAST ADMINISTRATION WAS ON 24/FEB/2019
     Route: 048
     Dates: start: 20190204
  8. REVLIMID [Suspect]
     Active Substance: LENALIDOMIDE
     Dosage: LAST ADMINISTRATION WAS ON 02/DEC/2018
     Route: 048
     Dates: start: 20181112
  9. REVLIMID [Suspect]
     Active Substance: LENALIDOMIDE
     Dosage: LAST ADMINISTRATION WAS ON 30/DEC/2018
     Route: 048
     Dates: start: 20181210
  10. REVLIMID [Suspect]
     Active Substance: LENALIDOMIDE
     Dosage: LAST ADMINISTRATION WAS ON 27/JAN/2019
     Route: 048
     Dates: start: 20190107

REACTIONS (1)
  - Neutropenia [Not Recovered/Not Resolved]

NARRATIVE: CASE EVENT DATE: 20190104
